FAERS Safety Report 23673046 (Version 1)
Quarter: 2024Q1

REPORT INFORMATION
  Report Type: Spontaneous
  Country: ID (occurrence: ID)
  Receive Date: 20240326
  Receipt Date: 20240326
  Transmission Date: 20240410
  Serious: Yes (Hospitalization, Other)
  Sender: FDA-Public Use
  Company Number: ID-MLMSERVICE-20240311-4877474-1

PATIENT
  Age: 52 Year
  Sex: Male

DRUGS (3)
  1. AMLODIPINE [Suspect]
     Active Substance: AMLODIPINE BESYLATE
     Indication: Hypertension
  2. PIRACETAM [Concomitant]
     Active Substance: PIRACETAM
     Indication: Memory impairment
  3. PIRACETAM [Concomitant]
     Active Substance: PIRACETAM
     Indication: Disturbance in attention

REACTIONS (1)
  - Dialysis disequilibrium syndrome [Not Recovered/Not Resolved]

NARRATIVE: CASE EVENT DATE: 20190701
